FAERS Safety Report 25966705 (Version 3)
Quarter: 2025Q4

REPORT INFORMATION
  Report Type: Spontaneous
  Country: US (occurrence: US)
  Receive Date: 20251028
  Receipt Date: 20251111
  Transmission Date: 20260117
  Serious: No
  Sender: TOLMAR
  Company Number: US-Tolmar-TLM-2025-07877

PATIENT
  Sex: Female

DRUGS (4)
  1. ELIGARD [Suspect]
     Active Substance: LEUPROLIDE ACETATE
     Indication: Hormone therapy
     Dosage: NDC: 62935075680?SN#: NOT AVAILABLE BOX DISCARDED?GTIN#: NOT AVAILABLE BOX DISCARDED?SYRINGE B: 1537
  2. ELIGARD [Suspect]
     Active Substance: LEUPROLIDE ACETATE
     Indication: Breast cancer
     Dosage: REPLACEMENT DOSE GIVEN
  3. DEVICE [Suspect]
     Active Substance: DEVICE
     Indication: Hormone therapy
     Dosage: NDC: 62935075680?SN#: NOT AVAILABLE BOX DISCARDED?GTIN#: NOT AVAILABLE BOX DISCARDED?SYRINGE B: 1537
  4. DEVICE [Suspect]
     Active Substance: DEVICE
     Indication: Breast cancer

REACTIONS (3)
  - Intercepted product preparation error [Unknown]
  - Off label use [Unknown]
  - Device occlusion [Unknown]
